FAERS Safety Report 9174931 (Version 1)
Quarter: 2013Q1

REPORT INFORMATION
  Report Type: Spontaneous
  Country: US (occurrence: US)
  Receive Date: 20130320
  Receipt Date: 20130320
  Transmission Date: 20140127
  Serious: Yes (Death)
  Sender: FDA-Public Use
  Company Number: US-SANOFI-AVENTIS-2013SA027710

PATIENT
  Sex: 0

DRUGS (2)
  1. PLAVIX [Suspect]
     Dates: start: 200901
  2. ASPIRIN [Suspect]
     Dates: start: 200901

REACTIONS (1)
  - Cerebral haemorrhage [Fatal]
